FAERS Safety Report 5060892-2 (Version None)
Quarter: 2006Q2

REPORT INFORMATION
  Report Type: 
  Country: None (occurrence: None)
  Receive Date: 20060630
  Receipt Date: 20051130
  Transmission Date: 20061013
  Serious: Yes (Hospitalization)
  Sender: FDA-Public Use
  Company Number: 427072

PATIENT
  Age: 65 Year
  Sex: Female

DRUGS (25)
  1. MYCOPHENOLATE MOFETIL (MYCOPHENOLATE MOFETIL) 250 MG [Suspect]
     Indication: PROPHYLAXIS AGAINST TRANSPLANT REJECTION
     Dosage: 500 MG 2 PER DAY ORAL
     Route: 048
     Dates: start: 20050528
  2. TACROLIMUS (AS COMPARATOR) (TACROLIMUS) 1 MG [Suspect]
     Indication: PROPHYLAXIS AGAINST TRANSPLANT REJECTION
     Dosage: 7 MG DAILY 2 PER DAY ORAL
     Route: 048
     Dates: start: 20050529
  3. PREDNISONE TAB [Suspect]
     Indication: PROPHYLAXIS AGAINST TRANSPLANT REJECTION
     Dosage: 5 MG 1 PER DAY ORAL
     Route: 048
     Dates: start: 20050601
  4. THYMOGLOBULIN [Suspect]
     Indication: PROPHYLAXIS AGAINST TRANSPLANT REJECTION
     Dosage: 100 MG 1 PER DAY INTRAVENOUS
     Route: 042
     Dates: start: 20050531, end: 20050605
  5. SIMULECT (BASILIXIMAB) 20 MG [Suspect]
     Indication: PROPHYLAXIS AGAINST TRANSPLANT REJECTION
     Dosage: 20 MG 1 PER DAY INTRAVENOUS
     Route: 042
     Dates: start: 20050528
  6. HUMULIN R [Concomitant]
  7. TYLENOL (CAPLET) [Concomitant]
  8. BACTRIM [Concomitant]
  9. DOCUSATE SODIUM (DOCUSATE SODIUM) [Concomitant]
  10. CYTOVENE (*GANCICLOVIR/*GANCICLOVIR SODIUM) [Concomitant]
  11. DIFLUCAN [Concomitant]
  12. PROTONIX [Concomitant]
  13. K-DUR 10 [Concomitant]
  14. ZOSYN [Concomitant]
  15. LOPRESSOR [Concomitant]
  16. LASIX [Concomitant]
  17. ASPIRIN [Concomitant]
  18. PHOSLO [Concomitant]
  19. NEXIUM [Concomitant]
  20. VALCYTE [Concomitant]
  21. FERROUS SULFATE TAB [Concomitant]
  22. INSULIN [Concomitant]
  23. FOLIC ACID [Concomitant]
  24. ROCEPHIN [Concomitant]
  25. SYNTHROID [Concomitant]

REACTIONS (1)
  - UROSEPSIS [None]
